FAERS Safety Report 4447274-9 (Version None)
Quarter: 2004Q3

REPORT INFORMATION
  Report Type: 
  Country: None (occurrence: None)
  Receive Date: 20040813
  Receipt Date: 20040706
  Transmission Date: 20050211
  Serious: No
  Sender: FDA-Public Use
  Company Number: S04-USA-04062-01

PATIENT
  Age: 74 Year
  Sex: Female

DRUGS (6)
  1. NAMENDA [Suspect]
     Indication: PAIN
     Dosage: 10 MG QD PO
     Route: 048
     Dates: start: 20040621
  2. GLUCOPHAGE [Concomitant]
  3. AVAPRO [Concomitant]
  4. HYDROCHLOROTHIAZIDE [Concomitant]
  5. SYNTHROID [Concomitant]
  6. LIPITOR [Concomitant]

REACTIONS (3)
  - CONSTIPATION [None]
  - PAIN EXACERBATED [None]
  - SOMNOLENCE [None]
